FAERS Safety Report 9919673 (Version 2)
Quarter: 2014Q1

REPORT INFORMATION
  Report Type: Report from Study
  Country: CA (occurrence: CA)
  Receive Date: 20140224
  Receipt Date: 20140317
  Transmission Date: 20141002
  Serious: Yes (Other)
  Sender: FDA-Public Use
  Company Number: CA-ABBVIE-14P-028-1203501-00

PATIENT
  Age: 37 Year
  Sex: Female
  Weight: 86.26 kg

DRUGS (2)
  1. HUMIRA [Suspect]
     Indication: PSORIASIS
     Route: 058
     Dates: start: 201002
  2. HUMIRA [Suspect]
     Route: 058
     Dates: start: 20100601, end: 20140118

REACTIONS (1)
  - Vulval cancer [Not Recovered/Not Resolved]
